FAERS Safety Report 18877306 (Version 1)
Quarter: 2021Q1

REPORT INFORMATION
  Report Type: Spontaneous
  Country: US (occurrence: US)
  Receive Date: 20210210
  Receipt Date: 20210210
  Transmission Date: 20210420
  Serious: Yes (Hospitalization)
  Sender: FDA-Public Use
  Company Number: None

PATIENT
  Age: 70 Year
  Sex: Male
  Weight: 106.8 kg

DRUGS (22)
  1. CEFEPIME 1G IV Q8H DECREASED TO Q12H 12/8 [Concomitant]
     Dates: start: 20201205, end: 20201212
  2. HEPARIN INFUSION [Concomitant]
     Dates: start: 20201208, end: 20201209
  3. PRAVASTATIN 20MG QHS [Concomitant]
     Dates: start: 20201129, end: 20201212
  4. ATRACURIUM INFUSION [Concomitant]
     Dates: start: 20201207, end: 20201211
  5. CEFTRIAXONE 1G IV DAILY [Concomitant]
     Dates: start: 20201129, end: 20201205
  6. MIDAZOLAM INFUSION [Concomitant]
     Active Substance: MIDAZOLAM HYDROCHLORIDE
     Dates: start: 20201205, end: 20201212
  7. FENTANYL INFUSION [Concomitant]
     Active Substance: FENTANYL
     Dates: start: 20201205, end: 20201212
  8. METOPROLOL ER 50MG DAILY [Concomitant]
     Dates: start: 20201129, end: 20201206
  9. AMLODIPINE 5MG DAILY [Concomitant]
     Dates: start: 20201129, end: 20201205
  10. LISPRO SSI TID AND HS [Concomitant]
     Dates: start: 20201130, end: 20201212
  11. NOREPI INFUSION [Concomitant]
     Dates: start: 20201205, end: 20201212
  12. DEXAMETHASONE 6MG IV DAILY [Concomitant]
     Dates: start: 20201129, end: 20201212
  13. MIDODRINE 5MG TID [Concomitant]
     Dates: start: 20201209, end: 20201212
  14. PROPOFOL INFUSION [Concomitant]
     Active Substance: PROPOFOL
     Dates: start: 20201205, end: 20201212
  15. ALBUMIN 25GRAMS IV BID [Concomitant]
     Dates: start: 20201207, end: 20201210
  16. ENOXAPARIN 40MG CHANGED TO 30MG SUBQ Q12H ON 12/6 [Concomitant]
     Dates: start: 20201130, end: 20201207
  17. FAMOTIDINE 20MG IV BID [Concomitant]
     Dates: start: 20201207, end: 20201212
  18. LISINOPRIL 20MG DAILY [Concomitant]
     Dates: start: 20201129, end: 20201206
  19. REMDESIVIR. [Suspect]
     Active Substance: REMDESIVIR
     Indication: COVID-19 PNEUMONIA
     Dosage: ?          OTHER FREQUENCY:200MG X1, 100MG/D;?
     Route: 042
     Dates: start: 20201127, end: 20201204
  20. DEXMEDETOMIDINE INFUSION [Concomitant]
     Dates: start: 20201201, end: 20201207
  21. LANTUS PROTOCOL DAILY [Concomitant]
     Dates: start: 20201130, end: 20201212
  22. LINEZOLID 600MG IV Q12H [Concomitant]
     Dates: start: 20201206, end: 20201209

REACTIONS (5)
  - Blood creatinine increased [None]
  - Cardiac arrest [None]
  - Pyrexia [None]
  - Urine output decreased [None]
  - Blood pressure decreased [None]

NARRATIVE: CASE EVENT DATE: 20201206
